FAERS Safety Report 9206587 (Version 1)
Quarter: 2013Q1

REPORT INFORMATION
  Report Type: Spontaneous
  Country: US (occurrence: None)
  Receive Date: 20120731
  Receipt Date: 20120731
  Transmission Date: 20140127
  Serious: No
  Sender: FDA-Public Use
  Company Number: 2012MZ000329

PATIENT
  Age: 25 Year
  Sex: Female

DRUGS (2)
  1. XEOMIN [Suspect]
     Indication: SKIN WRINKLING
     Dosage: 41 U
     Dates: start: 20120131, end: 20120131
  2. XEOMIN [Suspect]
     Indication: SKIN WRINKLING
     Dosage: 41 U
     Dates: start: 20120131, end: 20120131

REACTIONS (3)
  - Drug ineffective [None]
  - Therapeutic response decreased [None]
  - Off label use [None]
